FAERS Safety Report 15987281 (Version 1)
Quarter: 2019Q1

REPORT INFORMATION
  Report Type: Spontaneous
  Country: GB (occurrence: GB)
  Receive Date: 20190220
  Receipt Date: 20190220
  Transmission Date: 20190418
  Serious: Yes (Other)
  Sender: FDA-Public Use
  Company Number: GB-FRESENIUS KABI-FK201901702

PATIENT
  Age: 72 Year
  Sex: Female
  Weight: 66 kg

DRUGS (2)
  1. FLUCLOXACILLIN (MANUFACTURER UNKNOWN) [Suspect]
     Active Substance: FLUCLOXACILLIN
     Indication: SURGERY
     Route: 042
     Dates: start: 20181208, end: 20181208
  2. ROCURONIUM [Suspect]
     Active Substance: ROCURONIUM BROMIDE
     Indication: PARALYSIS
     Dosage: 70MG + 30MG
     Route: 042
     Dates: start: 20181208, end: 20181208

REACTIONS (1)
  - Anaphylactic reaction [Recovered/Resolved]

NARRATIVE: CASE EVENT DATE: 20181208
